FAERS Safety Report 18465426 (Version 1)
Quarter: 2020Q4

REPORT INFORMATION
  Report Type: Other
  Country: US (occurrence: US)
  Receive Date: 20201105
  Receipt Date: 20201105
  Transmission Date: 20210114
  Serious: Yes (Death, Other)
  Sender: FDA-Public Use
  Company Number: US-ROCHE-2708096

PATIENT

DRUGS (4)
  1. TACROLIMUS. [Suspect]
     Active Substance: TACROLIMUS
     Indication: PROPHYLAXIS AGAINST GRAFT VERSUS HOST DISEASE
     Dosage: 5 AND 15 NG/ML
     Route: 065
  2. FILGRASTIM [Concomitant]
     Active Substance: FILGRASTIM
  3. RITUXIMAB. [Suspect]
     Active Substance: RITUXIMAB
     Indication: PROPHYLAXIS AGAINST GRAFT VERSUS HOST DISEASE
     Dosage: ON DAY -7, -1, -7, AND +14
     Route: 041
  4. METHOTREXATE. [Suspect]
     Active Substance: METHOTREXATE
     Indication: PROPHYLAXIS AGAINST GRAFT VERSUS HOST DISEASE
     Dosage: +1, +3, AND +6
     Route: 042

REACTIONS (5)
  - Myocardial infarction [Unknown]
  - Cytomegalovirus infection reactivation [Unknown]
  - Bacterial infection [Unknown]
  - Escherichia infection [Fatal]
  - Aspergillus infection [Fatal]
